FAERS Safety Report 7740587-4 (Version None)
Quarter: 2011Q3

REPORT INFORMATION
  Report Type: 
  Country: None (occurrence: None)
  Receive Date: 20110909
  Receipt Date: 20110829
  Transmission Date: 20111222
  Serious: Yes (Other)
  Sender: FDA-Public Use
  Company Number: US-BAYER-2011-079821

PATIENT
  Age: 27 Year
  Sex: Female

DRUGS (1)
  1. MIRENA [Suspect]
     Indication: CONTRACEPTION
     Dosage: 20 MCG/24HR, UNK
     Route: 015
     Dates: start: 20080701, end: 20110611

REACTIONS (8)
  - ABDOMINAL PAIN [None]
  - TWIN PREGNANCY [None]
  - HYPOMENORRHOEA [None]
  - ABDOMINAL DISTENSION [None]
  - MENORRHAGIA [None]
  - MUSCLE SPASMS [None]
  - ECTOPIC PREGNANCY [None]
  - HEADACHE [None]
